FAERS Safety Report 12394488 (Version 2)
Quarter: 2016Q2

REPORT INFORMATION
  Report Type: Report from Study
  Country: US (occurrence: US)
  Receive Date: 20160523
  Receipt Date: 20160607
  Transmission Date: 20160815
  Serious: Yes (Hospitalization)
  Sender: FDA-Public Use
  Company Number: US-PFIZER INC-2016258303

PATIENT
  Age: 67 Year
  Sex: Female
  Weight: 82 kg

DRUGS (4)
  1. OLARATUMAB [Suspect]
     Active Substance: OLARATUMAB
     Indication: LIPOSARCOMA
     Dosage: LIQUID, 10 MG/KG, DAY ONE AND EIGHT FOR A 21 DAY CYCLE (FOR CYCLES TWO TO EIGHT)
     Route: 042
     Dates: end: 20160420
  2. DOXORUBICIN HCL [Suspect]
     Active Substance: DOXORUBICIN HYDROCHLORIDE
     Dosage: 45 MG/M2, CYCLICAL
     Route: 042
     Dates: start: 20160511
  3. DEXRAZOXANE. [Concomitant]
     Active Substance: DEXRAZOXANE
  4. DOXORUBICIN HCL [Suspect]
     Active Substance: DOXORUBICIN HYDROCHLORIDE
     Indication: LIPOSARCOMA
     Dosage: 60 MG/M2, ON DAY 1 FOR A 21 DAY CYCLE (FOR CYCLES TWO TO EIGHT)
     Route: 042
     Dates: end: 20160420

REACTIONS (2)
  - Fistula discharge [Unknown]
  - Enterocutaneous fistula [Unknown]

NARRATIVE: CASE EVENT DATE: 20160501
